FAERS Safety Report 9698996 (Version 1)
Quarter: 2013Q4

REPORT INFORMATION
  Report Type: Spontaneous
  Country: ES (occurrence: ES)
  Receive Date: 20131120
  Receipt Date: 20131120
  Transmission Date: 20140711
  Serious: Yes (Other)
  Sender: FDA-Public Use
  Company Number: ES-009507513-1311ESP004444

PATIENT
  Age: 63 Year
  Sex: Male

DRUGS (3)
  1. REBETOL [Suspect]
     Indication: HEPATITIS C
     Dosage: 1200
     Route: 048
     Dates: start: 20130122, end: 20130425
  2. BOCEPREVIR [Suspect]
     Indication: HEPATITIS C
     Dosage: 2400
     Route: 048
     Dates: start: 20130219, end: 20130425
  3. PEGASYS [Suspect]
     Indication: HEPATITIS C
     Dosage: 180 WEEKLY
     Route: 058
     Dates: start: 20130122, end: 20130425

REACTIONS (1)
  - Thrombocytopenia [Recovering/Resolving]
